FAERS Safety Report 8829555 (Version 1)
Quarter: 2012Q4

REPORT INFORMATION
  Report Type: 
  Country: US (occurrence: US)
  Receive Date: 20121008
  Receipt Date: 20121008
  Transmission Date: 20130627
  Serious: No
  Sender: FDA-Public Use
  Company Number: US-TEVA-326991USA

PATIENT
  Sex: Female
  Weight: 106.69 kg

DRUGS (7)
  1. QVAR [Suspect]
     Indication: CHRONIC OBSTRUCTIVE PULMONARY DISEASE
     Dosage: 80 Microgram Daily; 1 puff
     Route: 055
     Dates: start: 201202
  2. ATENOLOL [Concomitant]
  3. SPIRONOLACTONE [Concomitant]
  4. FISH OIL [Concomitant]
  5. UBIDECARENONE [Concomitant]
  6. POTASSIUM CHLORIDE [Concomitant]
  7. ALENDRONATE SODIUM [Concomitant]

REACTIONS (1)
  - Drug effect decreased [Unknown]
